FAERS Safety Report 6782616-0 (Version None)
Quarter: 2010Q2

REPORT INFORMATION
  Report Type: 
  Country: None (occurrence: None)
  Receive Date: 20100621
  Receipt Date: 20100611
  Transmission Date: 20101027
  Serious: Yes (Other)
  Sender: FDA-Public Use
  Company Number: IL-ABBOTT-10P-082-0646422-00

PATIENT
  Age: 24 Year
  Sex: Female
  Weight: 60 kg

DRUGS (5)
  1. HUMIRA [Suspect]
     Indication: CROHN'S DISEASE
     Route: 058
     Dates: start: 20080101, end: 20100501
  2. HUMIRA [Suspect]
     Dates: start: 20100601
  3. LOSEC I.V. [Concomitant]
     Indication: DRUG USE FOR UNKNOWN INDICATION
  4. IRON [Concomitant]
     Indication: DRUG USE FOR UNKNOWN INDICATION
  5. ARCOXIA [Concomitant]
     Indication: DRUG USE FOR UNKNOWN INDICATION

REACTIONS (3)
  - FEMALE GENITAL TRACT FISTULA [None]
  - IMPAIRED HEALING [None]
  - POSTOPERATIVE WOUND COMPLICATION [None]
